FAERS Safety Report 4315556-7 (Version None)
Quarter: 2004Q1

REPORT INFORMATION
  Report Type: 
  Country: None (occurrence: None)
  Receive Date: 20040311
  Receipt Date: 20031208
  Transmission Date: 20041129
  Serious: Yes (Life-Threatening, Hospitalization)
  Sender: FDA-Public Use
  Company Number: FR-ROCHE-353949

PATIENT
  Age: 52 Year
  Sex: Female
  Weight: 52 kg

DRUGS (8)
  1. RIVOTRIL [Suspect]
     Dosage: DOSAGE DECREASED TO 10 DROPS DAILY.
     Route: 048
     Dates: start: 19980615
  2. RIVOTRIL [Suspect]
     Route: 048
  3. RIVOTRIL [Suspect]
     Dosage: TAKEN IN THE EVENING.
     Route: 048
  4. RIVOTRIL [Suspect]
     Dosage: DOSAGE PROGRESSIVELY DECREASED TO 6 DROPS DAILY.
     Route: 048
     Dates: start: 20030515
  5. RIVOTRIL [Suspect]
     Dosage: DOSAGE WAS INCREASED.
     Route: 048
  6. RIVOTRIL [Suspect]
     Dosage: ^REINTRODUCED AT THE SAME DOSAGE AS INITIALLY.^
     Route: 048
  7. LAROXYL [Concomitant]
  8. LEXOMIL ROCHE [Concomitant]

REACTIONS (4)
  - BRADYCARDIA [None]
  - DRUG WITHDRAWAL SYNDROME [None]
  - SPEECH DISORDER [None]
  - SYNCOPE [None]
